FAERS Safety Report 9473451 (Version 1)
Quarter: 2013Q3

REPORT INFORMATION
  Report Type: Spontaneous
  Country: US (occurrence: US)
  Receive Date: 20130823
  Receipt Date: 20130823
  Transmission Date: 20140515
  Serious: No
  Sender: FDA-Public Use
  Company Number: US-BRISTOL-MYERS SQUIBB COMPANY-19001700

PATIENT
  Age: 60 Year
  Sex: Male
  Weight: 97.96 kg

DRUGS (16)
  1. SPRYCEL [Suspect]
     Route: 048
  2. LISINOPRIL [Concomitant]
     Dosage: TABS
  3. ZETIA [Concomitant]
     Dosage: TAB
  4. ZOLOFT [Concomitant]
     Dosage: TABS
  5. ACTOS [Concomitant]
     Dosage: TABS
  6. KOMBIGLYZE XR [Concomitant]
     Dosage: 1 DF=2.5 TO 1000 NO UNITS TABS
  7. LOVAZA [Concomitant]
     Dosage: CAPS
  8. ADVAIR [Concomitant]
     Dosage: 1 DF= 45/21 ADVAIR HFA AER
  9. FLONASE [Concomitant]
     Dosage: SPR DOSAGE FORM
  10. PROCHLORPERAZINE [Concomitant]
     Dosage: TABS
  11. ASPIRIN [Concomitant]
     Dosage: BABY ASPIRIN CHW
  12. BELLADONNA [Concomitant]
     Dosage: 1 DF= 30/100 ML TIN
  13. LASIX [Concomitant]
     Dosage: TABS
  14. POTASSIUM [Concomitant]
     Dosage: TABS
  15. NIASPAN [Concomitant]
     Dosage: TAB ER
  16. ALBUTEROL [Concomitant]
     Dosage: TABS

REACTIONS (3)
  - Nausea [Unknown]
  - Diarrhoea [Unknown]
  - Asthenia [Unknown]
